FAERS Safety Report 8403646-9 (Version None)
Quarter: 2012Q2

REPORT INFORMATION
  Report Type: 
  Country: None (occurrence: None)
  Receive Date: 20120601
  Receipt Date: 20120523
  Transmission Date: 20120825
  Serious: Yes (Life-Threatening, Hospitalization)
  Sender: FDA-Public Use
  Company Number: DE-ACTELION-A-US2010-33718

PATIENT

DRUGS (9)
  1. REVATIO [Concomitant]
  2. OXYGEN [Concomitant]
  3. LETAIRIS [Concomitant]
  4. TORSEMIDE [Concomitant]
  5. PROCORALAN [Concomitant]
  6. HYDROCHLOROTHIAZIDE [Concomitant]
  7. VENTAVIS [Suspect]
     Indication: PULMONARY ARTERIAL HYPERTENSION
     Dosage: UNK, 9 X DAY
     Route: 055
     Dates: start: 20081110
  8. TRACLEER [Suspect]
     Indication: PULMONARY ARTERIAL HYPERTENSION
     Dosage: UNK
     Route: 048
     Dates: start: 20030501, end: 20090511
  9. MARCUMAR [Concomitant]

REACTIONS (8)
  - CARDIOVERSION [None]
  - DIZZINESS [None]
  - TRANSAMINASES INCREASED [None]
  - CONTUSION [None]
  - HEART RATE DECREASED [None]
  - ATRIAL FIBRILLATION [None]
  - SYNCOPE [None]
  - HAEMATOCHEZIA [None]
